FAERS Safety Report 13821827 (Version 1)
Quarter: 2017Q3

REPORT INFORMATION
  Report Type: Spontaneous
  Country: GB (occurrence: GB)
  Receive Date: 20170801
  Receipt Date: 20170801
  Transmission Date: 20171127
  Serious: Yes (Hospitalization)
  Sender: FDA-Public Use
  Company Number: GB-009507513-1707GBR011624

PATIENT
  Age: 12 Year
  Sex: Female

DRUGS (2)
  1. MK-5592 [Suspect]
     Active Substance: POSACONAZOLE
     Dosage: 300 MG, QD
     Route: 048
  2. VINCRISTINE [Suspect]
     Active Substance: VINCRISTINE
     Dosage: 1 DF, UNK
     Route: 041

REACTIONS (1)
  - Pain in jaw [Unknown]
